FAERS Safety Report 5378219-5 (Version None)
Quarter: 2007Q3

REPORT INFORMATION
  Report Type: 
  Country: None (occurrence: None)
  Receive Date: 20070705
  Receipt Date: 20070627
  Transmission Date: 20080115
  Serious: Yes (Hospitalization)
  Sender: FDA-Public Use
  Company Number: SE-JNJFOC-20070606650

PATIENT
  Age: 40 Year
  Sex: Female

DRUGS (6)
  1. CONCERTA [Suspect]
     Route: 048
  2. CONCERTA [Suspect]
     Indication: ATTENTION DEFICIT/HYPERACTIVITY DISORDER
     Route: 048
  3. ZOLOFT [Concomitant]
  4. LAMOTRIGINE [Concomitant]
  5. STESOLID [Concomitant]
  6. SONATA [Concomitant]

REACTIONS (2)
  - INSOMNIA [None]
  - MANIA [None]
